FAERS Safety Report 23888858 (Version 1)
Quarter: 2024Q2

REPORT INFORMATION
  Report Type: Spontaneous
  Country: US (occurrence: None)
  Receive Date: 20240522
  Receipt Date: 20240522
  Transmission Date: 20240716
  Serious: Yes (Hospitalization)
  Sender: FDA-Public Use
  Company Number: None

PATIENT
  Age: 36 Year
  Sex: Female
  Weight: 95.3 kg

DRUGS (7)
  1. RINVOQ [Suspect]
     Active Substance: UPADACITINIB
     Indication: Crohn^s disease
     Dosage: FREQUENCY : DAILY;?
     Route: 048
     Dates: start: 20230710
  2. DOCUSATE [Concomitant]
     Active Substance: DOCUSATE
  3. OMEPRAZOLE [Concomitant]
     Active Substance: DONEPEZIL HYDROCHLORIDE\OMEPRAZOLE\OMEPRAZOLE MAGNESIUM
     Dates: start: 20231126
  4. ONDANSETRON [Concomitant]
     Active Substance: ONDANSETRON
     Dates: start: 20240213
  5. PREDNISONE [Concomitant]
     Active Substance: PREDNISONE
     Dates: start: 20231120
  6. SUBOXONE 2MG/0.5MG SUBL/BUCC FILM [Concomitant]
     Dates: start: 20230701
  7. ESSENTIAL MULTI WOMAN TABS [Concomitant]

REACTIONS (7)
  - Neoplasm malignant [None]
  - Hospice care [None]
  - Diarrhoea [None]
  - Mucous stools [None]
  - Nausea [None]
  - Vomiting [None]
  - Decreased appetite [None]

NARRATIVE: CASE EVENT DATE: 20240213
